FAERS Safety Report 25435683 (Version 1)
Quarter: 2025Q2

REPORT INFORMATION
  Report Type: Spontaneous
  Country: US (occurrence: None)
  Receive Date: 20250613
  Receipt Date: 20250613
  Transmission Date: 20250716
  Serious: Yes (Hospitalization)
  Sender: FDA-CTU
  Company Number: None

PATIENT
  Age: 53 Year
  Sex: Female
  Weight: 126.1 kg

DRUGS (1)
  1. CEFAZOLIN [Suspect]
     Active Substance: CEFAZOLIN
     Indication: Antibiotic prophylaxis
     Dosage: 2 G GRAM(S) 3 TIMES A DAY INTRAVENOUS
     Route: 042
     Dates: start: 20250612, end: 20250613

REACTIONS (2)
  - Extravasation [None]
  - Skin lesion [None]

NARRATIVE: CASE EVENT DATE: 20250613
